FAERS Safety Report 5166664-2 (Version None)
Quarter: 2006Q4

REPORT INFORMATION
  Report Type: 
  Country: None (occurrence: None)
  Receive Date: 20061130
  Receipt Date: 20061130
  Transmission Date: 20070319
  Serious: No
  Sender: FDA-Public Use
  Company Number: None

PATIENT
  Age: 58 Year
  Sex: Female
  Weight: 63.05 kg

DRUGS (1)
  1. SERTRALINE [Suspect]
     Indication: DEPRESSION
     Dosage: 100MG  PO  QD
     Route: 048
     Dates: start: 20061001, end: 20061101

REACTIONS (3)
  - PHARMACEUTICAL PRODUCT COMPLAINT [None]
  - RASH [None]
  - URTICARIA [None]
